FAERS Safety Report 8608869-1 (Version None)
Quarter: 2012Q3

REPORT INFORMATION
  Report Type: 
  Country: None (occurrence: None)
  Receive Date: 20120821
  Receipt Date: 20120814
  Transmission Date: 20120928
  Serious: No
  Sender: FDA-Public Use
  Company Number: US-PFIZER INC-2012199805

PATIENT
  Age: 18 Year
  Sex: Female
  Weight: 39.5 kg

DRUGS (2)
  1. DEPO-PROVERA [Suspect]
     Indication: CONTRACEPTION
     Dosage: UNK
     Dates: start: 20120706
  2. ACETAMINOPHEN, ASPIRIN, AND CODEINE PHOSPHATE [Concomitant]
     Indication: HEADACHE
     Dosage: 250/250/65 MG, AS NEEDED

REACTIONS (1)
  - MENORRHAGIA [None]
